FAERS Safety Report 8490145-1 (Version None)
Quarter: 2012Q2

REPORT INFORMATION
  Report Type: 
  Country: None (occurrence: None)
  Receive Date: 20120626
  Receipt Date: 20120620
  Transmission Date: 20120825
  Serious: Yes (Death, Hospitalization, Other)
  Sender: FDA-Public Use
  Company Number: US-ELI_LILLY_AND_COMPANY-US201003003234

PATIENT
  Sex: Female

DRUGS (19)
  1. AMBIEN [Concomitant]
  2. METOPROLOL SUCCINATE [Concomitant]
  3. CALCIUM [Concomitant]
  4. TYLENOL                                 /SCH/ [Concomitant]
     Dosage: UNK, AS NEEDED
  5. SYNTHROID [Concomitant]
  6. PREVACID [Concomitant]
  7. VALIUM [Concomitant]
     Dosage: UNK, AS NEEDED
  8. FORTEO [Suspect]
     Indication: OSTEOPOROSIS
     Dosage: 20 UG, QD
     Dates: start: 20100601
  9. LASIX [Concomitant]
  10. DURAGESIC-100 [Concomitant]
     Route: 062
  11. FORTEO [Suspect]
     Dosage: 20 UG, QD
     Dates: start: 20100601
  12. POTASSIUM [Concomitant]
  13. PROPECIA [Concomitant]
  14. SENNA-MINT WAF [Concomitant]
  15. SEROQUEL [Concomitant]
  16. FORTEO [Suspect]
     Dosage: 20 UG, QD
     Dates: start: 20100601
  17. PROZAC [Suspect]
  18. ASPIRIN [Concomitant]
  19. LYRICA [Concomitant]

REACTIONS (14)
  - HYPONATRAEMIA [None]
  - ACID BASE BALANCE ABNORMAL [None]
  - MALNUTRITION [None]
  - HEART RATE INCREASED [None]
  - FEELING HOT [None]
  - CLOSTRIDIUM DIFFICILE COLITIS [None]
  - ACUTE RESPIRATORY FAILURE [None]
  - DIZZINESS [None]
  - SINUSITIS [None]
  - HYPOKALAEMIA [None]
  - ANAEMIA MACROCYTIC [None]
  - GENERAL PHYSICAL CONDITION ABNORMAL [None]
  - MALIGNANT MELANOMA [None]
  - TREMOR [None]
